FAERS Safety Report 25935539 (Version 1)
Quarter: 2025Q4

REPORT INFORMATION
  Report Type: Report from Study
  Country: US (occurrence: None)
  Receive Date: 20251017
  Receipt Date: 20251017
  Transmission Date: 20260117
  Serious: Yes (Other)
  Sender: UCB
  Company Number: US-UCBSA-2025064605

PATIENT
  Age: 35 Year

DRUGS (1)
  1. CERTOLIZUMAB PEGOL [Suspect]
     Active Substance: CERTOLIZUMAB PEGOL
     Indication: Rheumatoid arthritis
     Dosage: 400 MILLIGRAM, EV 2 WEEKS(QOW)

REACTIONS (4)
  - Rheumatoid arthritis [Unknown]
  - Skin lesion [Recovering/Resolving]
  - Oral disorder [Recovering/Resolving]
  - Dysphagia [Recovering/Resolving]
